FAERS Safety Report 8695551 (Version 3)
Quarter: 2012Q4

REPORT INFORMATION
  Report Type: Report from Study
  Country: PL (occurrence: PL)
  Receive Date: 20120731
  Receipt Date: 20120904
  Transmission Date: 20130627
  Serious: Yes (Hospitalization)
  Sender: FDA-Public Use
  Company Number: PL-PFIZER INC-2012183239

PATIENT
  Age: 59 Year
  Sex: Female

DRUGS (14)
  1. ATORVASTATIN CALCIUM [Suspect]
     Dosage: UNK
     Dates: start: 2005, end: 20111023
  2. APIXABAN [Suspect]
     Indication: EMBOLISM
     Dosage: 5 mg, 1 Day
     Route: 048
     Dates: start: 20110516, end: 20110816
  3. PLACEBO [Suspect]
     Indication: EMBOLISM
     Dosage: UNK
     Route: 048
     Dates: start: 20110516, end: 20110816
  4. AZATHIOPRINE [Suspect]
     Dosage: UNK
     Dates: start: 20110823, end: 20111023
  5. ENCORTON [Concomitant]
     Dosage: UNK
     Dates: start: 2009
  6. BISOCARD [Concomitant]
     Dosage: UNK
     Dates: start: 2009
  7. GLIMEPIRIDE [Concomitant]
     Dosage: UNK
     Dates: start: 201005
  8. METFORMAX [Concomitant]
     Dosage: UNK
     Dates: start: 201005, end: 20110817
  9. KALIPOZ [Concomitant]
     Dosage: UNK
     Dates: start: 20110816
  10. CLEXANE [Concomitant]
     Dosage: UNK
     Dates: start: 20110816, end: 20120209
  11. PREDUCTAL [Concomitant]
     Dosage: UNK
     Dates: start: 20110816
  12. CALCIUM [Concomitant]
     Dosage: UNK
     Dates: start: 20110902
  13. ENARENAL [Concomitant]
     Dosage: UNK
     Dates: start: 20110818
  14. INSULIN ACTRAPID [Concomitant]
     Dosage: UNK
     Dates: start: 20110817

REACTIONS (3)
  - Deep vein thrombosis [Recovered/Resolved]
  - Myocardial ischaemia [Recovered/Resolved]
  - Liver injury [Recovered/Resolved]
